FAERS Safety Report 5827431-7 (Version None)
Quarter: 2008Q3

REPORT INFORMATION
  Report Type: 
  Country: None (occurrence: None)
  Receive Date: 20080730
  Receipt Date: 20080527
  Transmission Date: 20090109
  Serious: No
  Sender: FDA-Public Use
  Company Number: US-TYCO HEALTHCARE/MALLINCKRODT-T200800895

PATIENT

DRUGS (2)
  1. OPTIMARK [Suspect]
     Dosage: UNK, SINGLE
  2. SODIUM CHLORIDE 0.9% [Suspect]
     Dosage: UNK, SINGLE
     Route: 042

REACTIONS (3)
  - DRUG ADMINISTRATION ERROR [None]
  - INJECTION SITE EXTRAVASATION [None]
  - INJECTION SITE SWELLING [None]
